FAERS Safety Report 20039502 (Version 1)
Quarter: 2021Q4

REPORT INFORMATION
  Report Type: Report from Study
  Country: BE (occurrence: BE)
  Receive Date: 20211105
  Receipt Date: 20211105
  Transmission Date: 20220303
  Serious: Yes (Death)
  Sender: FDA-Public Use
  Company Number: BE-ABBVIE-21K-013-4147933-00

PATIENT
  Sex: Female
  Weight: 54 kg

DRUGS (10)
  1. CARBIDOPA\LEVODOPA [Suspect]
     Active Substance: CARBIDOPA\LEVODOPA
     Indication: Parkinson^s disease
     Route: 050
     Dates: start: 20140714
  2. CARBIDOPA\LEVODOPA [Suspect]
     Active Substance: CARBIDOPA\LEVODOPA
     Dosage: MD 3.0 ML; CD 5.7 ML/HR DURING 16 HOURS; ED 1.0 ML
     Route: 050
     Dates: start: 20210127, end: 20210420
  3. CARBIDOPA\LEVODOPA [Suspect]
     Active Substance: CARBIDOPA\LEVODOPA
     Dosage: MD 3.0 ML; CD 5.7 ML/HR DURING 16 HOURS; ED 1.3 ML
     Route: 050
     Dates: start: 20210420, end: 20210602
  4. CARBIDOPA\LEVODOPA [Suspect]
     Active Substance: CARBIDOPA\LEVODOPA
     Dosage: MD 3.0; CD 5.4 ML/HR DURING 16 HOURS; ED 0.8 ML
     Route: 050
     Dates: start: 20210602, end: 20210622
  5. CARBIDOPA\LEVODOPA [Suspect]
     Active Substance: CARBIDOPA\LEVODOPA
     Dosage: MD 3.0 ML; CD 5.0 ML/HR DURING 16 HOURS; ED 0.1 ML
     Route: 050
     Dates: start: 20210622, end: 20210703
  6. CARBIDOPA\LEVODOPA [Suspect]
     Active Substance: CARBIDOPA\LEVODOPA
     Dosage: MD 3.0 ML; CD 5.2 ML/HR DURING 16 HOURS; ED 0.1 ML
     Route: 050
     Dates: start: 20210703
  7. AZILECT [Concomitant]
     Active Substance: RASAGILINE MESYLATE
     Indication: Product used for unknown indication
     Dosage: AT 6.00 HOUR
  8. COMTAN [Concomitant]
     Active Substance: ENTACAPONE
     Indication: Product used for unknown indication
     Dosage: 6.00;9.00;12.00;15.00;18.00;22.00 HOUR
  9. BENSERAZIDE\LEVODOPA [Concomitant]
     Active Substance: BENSERAZIDE\LEVODOPA
     Indication: Product used for unknown indication
     Dosage: 0.25 TABLET, AT 22.00 HOUR
  10. BENSERAZIDE\LEVODOPA [Concomitant]
     Active Substance: BENSERAZIDE\LEVODOPA
     Dosage: 0.5 TABLET, AT 6.00;9.00;12.00;15.00 AND 18.00 HOUR

REACTIONS (1)
  - Death [Fatal]
